FAERS Safety Report 5055327-X (Version None)
Quarter: 2006Q3

REPORT INFORMATION
  Report Type: 
  Country: None (occurrence: None)
  Receive Date: 20060714
  Receipt Date: 20060628
  Transmission Date: 20061208
  Serious: Yes (Hospitalization)
  Sender: FDA-Public Use
  Company Number: 226480

PATIENT
  Age: 68 Year
  Sex: Female
  Weight: 45.4 kg

DRUGS (3)
  1. AVASTIN [Suspect]
     Indication: COLORECTAL CANCER
     Dosage: 7.5 MG/KG, Q3W, INTRAVENOUS
     Route: 042
     Dates: start: 20060511
  2. CAPECITABINE (CAPECITABINE) [Suspect]
     Indication: COLORECTAL CANCER
     Dosage: 2000 MG/M2, ORAL
     Route: 048
     Dates: start: 20060511
  3. OXALIPLATIN (OXALIPLATIN) [Suspect]
     Indication: COLORECTAL CANCER
     Dosage: 130 MG/M2, Q32, INTRAVENOUS
     Route: 042
     Dates: start: 20060511

REACTIONS (7)
  - CHEST DISCOMFORT [None]
  - NAUSEA [None]
  - NEUROPATHY PERIPHERAL [None]
  - RESPIRATORY DISORDER [None]
  - STOMATITIS [None]
  - SUPRAVENTRICULAR EXTRASYSTOLES [None]
  - VENTRICULAR EXTRASYSTOLES [None]
